FAERS Safety Report 5896795-0 (Version None)
Quarter: 2008Q3

REPORT INFORMATION
  Report Type: 
  Country: None (occurrence: None)
  Receive Date: 20080924
  Receipt Date: 20080626
  Transmission Date: 20090109
  Serious: Yes (Other)
  Sender: FDA-Public Use
  Company Number: US-ASTRAZENECA-2007UW27335

PATIENT
  Age: 39 Year
  Sex: Male
  Weight: 128.4 kg

DRUGS (11)
  1. SEROQUEL [Suspect]
     Indication: DEPRESSION
     Dosage: 200 MG, 400 MG
     Route: 048
     Dates: start: 20010501
  2. ABILIFY [Concomitant]
     Route: 048
  3. GEODON [Concomitant]
     Route: 048
     Dates: start: 20050101
  4. RISPERDAL [Concomitant]
     Dosage: 1 MG - 4 MG
     Route: 048
     Dates: start: 20020101, end: 20050101
  5. THORAZINE [Concomitant]
     Dates: start: 20060101
  6. EFFEXOR [Concomitant]
     Route: 048
     Dates: start: 20020101, end: 20040101
  7. PAXIL [Concomitant]
     Dosage: 25 MG, 37.5 MG
     Dates: start: 20010101, end: 20050101
  8. LITHIUM CARBONATE [Concomitant]
     Dates: start: 20030101, end: 20050101
  9. REMERON [Concomitant]
     Dates: start: 20030101, end: 20040101
  10. WELLBUTRIN [Concomitant]
     Dates: start: 20030101
  11. TRAZODONE HCL [Concomitant]
     Dates: start: 20010101

REACTIONS (4)
  - BLOOD CHOLESTEROL INCREASED [None]
  - DIABETES MELLITUS [None]
  - DIABETIC COMA [None]
  - HEAD INJURY [None]
